FAERS Safety Report 16485019 (Version 1)
Quarter: 2019Q2

REPORT INFORMATION
  Report Type: Spontaneous
  Country: US (occurrence: US)
  Receive Date: 20190516
  Receipt Date: 20190516
  Transmission Date: 20190711
  Serious: Yes (Hospitalization)
  Sender: FDA-Public Use
  Company Number: None

PATIENT
  Age: 78 Year
  Sex: Female
  Weight: 60 kg

DRUGS (3)
  1. TAXOL [Suspect]
     Active Substance: PACLITAXEL
  2. PERTUZUMAB. [Suspect]
     Active Substance: PERTUZUMAB
  3. TRASTUZUMAB. [Suspect]
     Active Substance: TRASTUZUMAB

REACTIONS (3)
  - Urinary tract infection [None]
  - Fatigue [None]
  - Dehydration [None]

NARRATIVE: CASE EVENT DATE: 20190513
